FAERS Safety Report 4647769-9 (Version None)
Quarter: 2005Q2

REPORT INFORMATION
  Report Type: 
  Country: None (occurrence: None)
  Receive Date: 20050426
  Receipt Date: 20050412
  Transmission Date: 20051028
  Serious: Yes (Hospitalization)
  Sender: FDA-Public Use
  Company Number: 05P-087-0291937-00

PATIENT
  Age: 7 Year
  Sex: Male

DRUGS (4)
  1. BIAXIN [Suspect]
     Indication: UPPER RESPIRATORY TRACT INFLAMMATION
     Dosage: 200 MG, 2 IN 1 D, PER ORAL
     Route: 048
     Dates: start: 20050216, end: 20050218
  2. AMBROXOL HYDORHCLORIDE [Concomitant]
  3. ISOSORBIDE DINITRATE [Concomitant]
  4. UNKNOWN DRUG [Concomitant]

REACTIONS (6)
  - ABASIA [None]
  - ASTHENIA [None]
  - FALL [None]
  - MOVEMENT DISORDER [None]
  - PYREXIA [None]
  - RHABDOMYOLYSIS [None]
